FAERS Safety Report 14115589 (Version 2)
Quarter: 2017Q4

REPORT INFORMATION
  Report Type: Spontaneous
  Country: US (occurrence: US)
  Receive Date: 20171023
  Receipt Date: 20171024
  Transmission Date: 20180321
  Serious: No
  Sender: FDA-Public Use
  Company Number: US-ARALEZ PHARMACEUTICALS R+D INC.-2017-ARA-001000

PATIENT
  Age: 69 Year
  Sex: Female

DRUGS (1)
  1. METOPROLOL SUCCINATE. [Suspect]
     Active Substance: METOPROLOL SUCCINATE
     Indication: ATRIAL FIBRILLATION
     Dosage: UNK
     Dates: end: 20171019

REACTIONS (6)
  - Excessive eye blinking [Unknown]
  - Off label use [Unknown]
  - Vision blurred [Unknown]
  - Photophobia [Unknown]
  - Visual impairment [Unknown]
  - Vitreous floaters [Unknown]
